FAERS Safety Report 4544628-7 (Version None)
Quarter: 2004Q4

REPORT INFORMATION
  Report Type: 
  Country: None (occurrence: None)
  Receive Date: 20041230
  Receipt Date: 20041220
  Transmission Date: 20050328
  Serious: Yes (Life-Threatening, Hospitalization)
  Sender: FDA-Public Use
  Company Number: 2004115211

PATIENT
  Age: 42 Year
  Sex: Male
  Weight: 108 kg

DRUGS (6)
  1. TAHOR (ATORVASTATIN) [Suspect]
     Indication: ILL-DEFINED DISORDER
     Dosage: 20 MG (1 IN 1 D), ORAL
     Route: 048
     Dates: start: 20040916, end: 20041003
  2. METFORMIN HCL [Suspect]
     Indication: ILL-DEFINED DISORDER
     Dosage: 2 GRAM (2 IN 1 D), ORAL
     Route: 048
     Dates: start: 20040916, end: 20041003
  3. ALLOPURINOL [Suspect]
     Indication: ILL-DEFINED DISORDER
     Dosage: 300 MG (300 MG, 1 IN 1 D), ORAL
     Route: 048
     Dates: start: 20040916, end: 20041003
  4. KARVEA HCT (HYDROCHLOROTHIAZIDE, IRBESARTAN) [Suspect]
     Indication: ILL-DEFINED DISORDER
     Dosage: (1 IN 1 D), ORAL
     Route: 048
     Dates: start: 20040916, end: 20041003
  5. FERVEX (ASCORBIC ACID, PARACETAMOL, PHENIRAMINE MALEATE) [Concomitant]
  6. AZITHROMYCIN [Concomitant]

REACTIONS (4)
  - CONJUNCTIVITIS [None]
  - PHARYNGITIS [None]
  - RASH GENERALISED [None]
  - TOXIC EPIDERMAL NECROLYSIS [None]
